FAERS Safety Report 19280163 (Version 3)
Quarter: 2021Q4

REPORT INFORMATION
  Report Type: Spontaneous
  Country: US (occurrence: US)
  Receive Date: 20210520
  Receipt Date: 20211202
  Transmission Date: 20220304
  Serious: Yes (Other)
  Sender: FDA-Public Use
  Company Number: US-GILEAD-2021-0531489

PATIENT
  Age: 50 Year
  Sex: Male

DRUGS (4)
  1. TRUVADA [Suspect]
     Active Substance: EMTRICITABINE\TENOFOVIR DISOPROXIL FUMARATE
     Indication: HIV infection
     Dosage: UNK
     Route: 048
     Dates: start: 2014, end: 2017
  2. TRUVADA [Suspect]
     Active Substance: EMTRICITABINE\TENOFOVIR DISOPROXIL FUMARATE
     Dosage: UNK
     Route: 048
     Dates: start: 20100120, end: 20170105
  3. DESCOVY [Concomitant]
     Active Substance: EMTRICITABINE\TENOFOVIR ALAFENAMIDE FUMARATE
  4. SYMTUZA [Concomitant]
     Active Substance: COBICISTAT\DARUNAVIR\EMTRICITABINE\TENOFOVIR ALAFENAMIDE

REACTIONS (8)
  - Osteonecrosis [Unknown]
  - Multiple fractures [Recovered/Resolved]
  - Bone density decreased [Unknown]
  - Bone loss [Unknown]
  - Foot fracture [Recovered/Resolved]
  - Osteopenia [Not Recovered/Not Resolved]
  - Foot fracture [Recovered/Resolved]
  - Foot fracture [Recovered/Resolved]

NARRATIVE: CASE EVENT DATE: 20160101
